FAERS Safety Report 20377444 (Version 12)
Quarter: 2024Q3

REPORT INFORMATION
  Report Type: Spontaneous
  Country: CA (occurrence: CA)
  Receive Date: 20220126
  Receipt Date: 20240820
  Transmission Date: 20241017
  Serious: Yes (Hospitalization, Other)
  Sender: CELLTRION
  Company Number: CA-CELLTRION INC.-2021CA018244

PATIENT

DRUGS (11)
  1. INFLECTRA [Suspect]
     Active Substance: INFLIXIMAB-DYYB
     Indication: Sarcoidosis
     Dosage: 450 MG, 0,2,6 THEN EVERY 8 WEEKS
     Route: 042
     Dates: start: 20211208, end: 20230331
  2. INFLECTRA [Suspect]
     Active Substance: INFLIXIMAB-DYYB
     Dosage: 500 MG (SUPPOSED TO RECEIVE 450 MG), 0,2,6 THEN EVERY 8 WEEKS(INCORRECT DOSE ADMINISTERED)
     Route: 042
     Dates: start: 20211218, end: 20211218
  3. INFLECTRA [Suspect]
     Active Substance: INFLIXIMAB-DYYB
     Dosage: 450 MG, Q 0,2,6 THEN EVERY 8 WEEKS
     Route: 042
     Dates: start: 20221025
  4. INFLECTRA [Suspect]
     Active Substance: INFLIXIMAB-DYYB
     Dosage: 450 MG (SUPPOSED TO RECEIVE 300 MG) EVERY 10 WEEKS
     Route: 042
     Dates: start: 20230202
  5. INFLECTRA [Suspect]
     Active Substance: INFLIXIMAB-DYYB
     Dosage: 450 MG (SUPPOSED TO RECEIVE 300 MG) EVERY 10 WEEKS
     Route: 042
     Dates: start: 20230525
  6. INFLECTRA [Suspect]
     Active Substance: INFLIXIMAB-DYYB
     Dosage: 450 MG (SUPPOSED TO RECEIVE 400MG.)
     Route: 042
     Dates: start: 20230721
  7. INFLECTRA [Suspect]
     Active Substance: INFLIXIMAB-DYYB
     Dosage: 500 MG, EVERY 8 WEEKS ((SUPPOSED TO RECEIVE 400MG)
     Route: 042
     Dates: start: 20240105
  8. INFLECTRA [Suspect]
     Active Substance: INFLIXIMAB-DYYB
     Dosage: 500 MG, AFTER 8 WEEKS (SUPPOSED TO RECEIVE 400MG)
     Route: 042
     Dates: start: 20240809
  9. METHOTREXATE [Concomitant]
     Active Substance: METHOTREXATE
     Dosage: 25 MG, WEEKLY
     Route: 058
  10. PREDNISONE [Concomitant]
     Active Substance: PREDNISONE
     Dosage: DOSES BETWEEN 20 AND 40MG DAILY
  11. PREDNISONE [Concomitant]
     Active Substance: PREDNISONE
     Dosage: 20 MG, DAILY (PO TAPER)
     Route: 048

REACTIONS (12)
  - Spinal operation [Unknown]
  - Cardiac sarcoidosis [Not Recovered/Not Resolved]
  - Diabetes mellitus [Unknown]
  - Off label use [Unknown]
  - Inappropriate schedule of product administration [Unknown]
  - Incorrect dose administered [Unknown]
  - Product prescribing error [Unknown]
  - Dyspnoea [Not Recovered/Not Resolved]
  - Fatigue [Not Recovered/Not Resolved]
  - Hyperhidrosis [Not Recovered/Not Resolved]
  - COVID-19 [Unknown]
  - Postoperative wound infection [Unknown]

NARRATIVE: CASE EVENT DATE: 20220101
